FAERS Safety Report 8884899 (Version 2)
Quarter: 2012Q4

REPORT INFORMATION
  Report Type: Report from Study
  Country: JP (occurrence: JP)
  Receive Date: 20121102
  Receipt Date: 20121219
  Transmission Date: 20130627
  Serious: Yes (Other)
  Sender: FDA-Public Use
  Company Number: JP-VERTEX PHARMACEUTICAL INC.-2012-023920

PATIENT
  Age: 59 Year
  Sex: Female

DRUGS (10)
  1. VX-950 (TELAPREVIR) [Suspect]
     Indication: CHRONIC HEPATITIS C
     Dosage: 1500 mg, qd
     Route: 048
     Dates: start: 20120828, end: 20121029
  2. RIBAVIRIN [Suspect]
     Indication: CHRONIC HEPATITIS C
     Dosage: 600 mg, qd
     Route: 048
     Dates: start: 20120828, end: 20120924
  3. RIBAVIRIN [Suspect]
     Dosage: 400 mg, qd
     Route: 048
     Dates: start: 20120925, end: 20121113
  4. RIBAVIRIN [Suspect]
     Dosage: 600 mg, qd
     Route: 048
     Dates: start: 20121114
  5. PEGINTERFERON ALFA-2B [Suspect]
     Indication: CHRONIC HEPATITIS C
     Dosage: 1.5 ?g/kg, qw
     Route: 058
     Dates: start: 20120828, end: 20120904
  6. PEGINTERFERON ALFA-2B [Suspect]
     Dosage: 50 ?g/kg, UNK
     Route: 058
     Dates: start: 20120911, end: 20120911
  7. PEGINTERFERON ALFA-2B [Suspect]
     Dosage: 70 ?g/kg, UNK
     Route: 058
     Dates: start: 20120918, end: 20120925
  8. PEGINTERFERON ALFA-2B [Suspect]
     Dosage: 60 ?g/kg, qw
     Route: 058
     Dates: start: 20121002
  9. VICTOZA [Concomitant]
     Dosage: 0.9 mg, qd
     Route: 058
  10. AMARYL [Concomitant]
     Dosage: 1 mg, qd
     Route: 048

REACTIONS (1)
  - Neutrophil count decreased [Recovered/Resolved]
